FAERS Safety Report 4555559-0 (Version None)
Quarter: 2005Q1

REPORT INFORMATION
  Report Type: 
  Country: None (occurrence: None)
  Receive Date: 20050118
  Receipt Date: 20050118
  Transmission Date: 20050727
  Serious: Yes (Hospitalization)
  Sender: FDA-Public Use
  Company Number: None

PATIENT
  Age: 64 Year
  Sex: Female
  Weight: 67.9 kg

DRUGS (3)
  1. MITOMYCIN [Suspect]
     Indication: ANAL CANCER
     Dosage: 17 MG IV X 1
     Route: 042
     Dates: start: 20050110
  2. FLUOROURACIL [Suspect]
     Indication: ANAL CANCER
     Dosage: 1700 MG IV DAY X 4
     Route: 042
     Dates: start: 20050110, end: 20050114
  3. RADIATION THERAPY [Concomitant]

REACTIONS (8)
  - BLOOD SODIUM DECREASED [None]
  - BODY TEMPERATURE INCREASED [None]
  - CHILLS [None]
  - DECREASED APPETITE [None]
  - DIARRHOEA [None]
  - NAUSEA [None]
  - TREMOR [None]
  - WHITE BLOOD CELL COUNT DECREASED [None]
